FAERS Safety Report 7808421-1 (Version None)
Quarter: 2011Q4

REPORT INFORMATION
  Report Type: 
  Country: None (occurrence: None)
  Receive Date: 20111007
  Receipt Date: 20110923
  Transmission Date: 20120403
  Serious: Yes (Hospitalization)
  Sender: FDA-Public Use
  Company Number: DSJ-2011-20793

PATIENT
  Age: 77 Year
  Sex: Female

DRUGS (3)
  1. DIOSMIN (DIOSMIN)  (DIOSMIN) [Suspect]
     Indication: VARICOSE VEIN
     Dosage: PER ORAL
     Route: 048
     Dates: start: 20110901
  2. BENICAR HCT [Suspect]
     Indication: HYPERTENSION
     Dosage: 40/12.5 MG (1 IN 1 D), PER ORAL
     Route: 048
     Dates: start: 20100101
  3. AMIODARONE HCL [Concomitant]

REACTIONS (2)
  - VARICOSE VEIN [None]
  - HEADACHE [None]
